FAERS Safety Report 9005862 (Version 2)
Quarter: 2013Q1

REPORT INFORMATION
  Report Type: Spontaneous
  Country: PL (occurrence: PL)
  Receive Date: 20130109
  Receipt Date: 20130201
  Transmission Date: 20140127
  Serious: Yes (Other)
  Sender: FDA-Public Use
  Company Number: PHHY2013PL001329

PATIENT
  Age: 49 Year
  Sex: Female

DRUGS (1)
  1. NILOTINIB [Suspect]
     Indication: CHRONIC MYELOID LEUKAEMIA
     Dosage: 400 MG, BID
     Route: 048
     Dates: start: 20120726, end: 201209

REACTIONS (7)
  - Myelodysplastic syndrome [Unknown]
  - Pancytopenia [Unknown]
  - Second primary malignancy [Unknown]
  - Discomfort [Unknown]
  - Fatigue [Unknown]
  - Bone pain [Unknown]
  - Decreased appetite [Unknown]
